FAERS Safety Report 23403988 (Version 2)
Quarter: 2024Q1

REPORT INFORMATION
  Report Type: Report from Study
  Country: US (occurrence: US)
  Receive Date: 20240116
  Receipt Date: 20240207
  Transmission Date: 20240410
  Serious: Yes (Death, Hospitalization, Other)
  Sender: FDA-Public Use
  Company Number: US-GILEAD-2024-0658413

PATIENT
  Age: 61 Year
  Sex: Female

DRUGS (2)
  1. AMBRISENTAN [Suspect]
     Active Substance: AMBRISENTAN
     Indication: Pulmonary arterial hypertension
     Dosage: 1 DOSAGE FORM, QD
     Route: 048
     Dates: start: 20180228
  2. AMBRISENTAN [Suspect]
     Active Substance: AMBRISENTAN
     Dosage: 1 DOSAGE FORM, QD
     Route: 048
     Dates: start: 20180301

REACTIONS (4)
  - Death [Fatal]
  - Spinal fracture [Not Recovered/Not Resolved]
  - Candida infection [Not Recovered/Not Resolved]
  - Herpes zoster [Not Recovered/Not Resolved]

NARRATIVE: CASE EVENT DATE: 20240109
